FAERS Safety Report 8169219-0 (Version None)
Quarter: 2012Q1

REPORT INFORMATION
  Report Type: 
  Country: None (occurrence: None)
  Receive Date: 20120227
  Receipt Date: 20120216
  Transmission Date: 20120608
  Serious: Yes (Hospitalization, Other)
  Sender: FDA-Public Use
  Company Number: BR-ASTRAZENECA-2011SE52408

PATIENT
  Age: 69 Year
  Sex: Female
  Weight: 60 kg

DRUGS (2)
  1. METOPROLOL SUCCINATE [Suspect]
     Indication: HYPERTENSION
     Route: 048
     Dates: start: 19990101
  2. ENTOCORT EC [Suspect]
     Indication: HAEMORRHOIDS
     Route: 054
     Dates: start: 20110901, end: 20110901

REACTIONS (4)
  - BOWEL MOVEMENT IRREGULARITY [None]
  - OFF LABEL USE [None]
  - DRUG PRESCRIBING ERROR [None]
  - HAEMORRHOIDS [None]
